FAERS Safety Report 15784979 (Version 1)
Quarter: 2018Q4

REPORT INFORMATION
  Report Type: Spontaneous
  Country: US (occurrence: US)
  Receive Date: 20181228
  Receipt Date: 20181228
  Transmission Date: 20190205
  Serious: No
  Sender: FDA-Public Use
  Company Number: None

PATIENT
  Sex: Female

DRUGS (2)
  1. COUMADIN [Suspect]
     Active Substance: WARFARIN SODIUM
  2. AMIDARONE TBALETS [Suspect]
     Active Substance: AMIODARONE

REACTIONS (5)
  - Subdural haematoma [None]
  - Gastrointestinal haemorrhage [None]
  - Haemorrhagic stroke [None]
  - Decreased appetite [None]
  - Product communication issue [None]

NARRATIVE: CASE EVENT DATE: 2018
